FAERS Safety Report 7514187-5 (Version None)
Quarter: 2011Q2

REPORT INFORMATION
  Report Type: 
  Country: None (occurrence: None)
  Receive Date: 20110531
  Receipt Date: 20110521
  Transmission Date: 20111010
  Serious: Yes (Hospitalization, Other)
  Sender: FDA-Public Use
  Company Number: US-SANOFI-AVENTIS-2011SA032800

PATIENT
  Age: 80 Year
  Sex: Female

DRUGS (4)
  1. LANTUS [Suspect]
     Indication: TYPE 2 DIABETES MELLITUS
     Dosage: EVERY MORNING DOSE:30 UNIT(S)
     Route: 058
     Dates: start: 20100101
  2. NOVOLOG [Concomitant]
  3. SOLOSTAR [Suspect]
  4. SOLOSTAR [Suspect]
     Indication: TYPE 2 DIABETES MELLITUS
     Dates: start: 20100101

REACTIONS (6)
  - EXPIRED DRUG ADMINISTERED [None]
  - IMPAIRED HEALING [None]
  - WEIGHT DECREASED [None]
  - BLOOD GLUCOSE INCREASED [None]
  - ELECTROLYTE IMBALANCE [None]
  - FEMUR FRACTURE [None]
